FAERS Safety Report 6344034-9 (Version None)
Quarter: 2009Q3

REPORT INFORMATION
  Report Type: 
  Country: None (occurrence: None)
  Receive Date: 20090904
  Receipt Date: 20090904
  Transmission Date: 20100115
  Serious: Yes (Hospitalization)
  Sender: FDA-Public Use
  Company Number: None

PATIENT
  Age: 25 Year
  Sex: Male
  Weight: 54.4316 kg

DRUGS (2)
  1. DIVALPROEX DR 500MG UPSHER-SMITH [Suspect]
     Indication: AFFECTIVE DISORDER
     Dosage: 500MG TWICE A DAY PO
     Route: 048
     Dates: start: 20081217, end: 20090514
  2. RISPERIDONE 3MG CADILA HEALTHCARE [Suspect]
     Indication: PSYCHOTIC DISORDER
     Dosage: 3MG BEDTIME PO
     Route: 048
     Dates: start: 20090504, end: 20090514

REACTIONS (2)
  - CONFUSIONAL STATE [None]
  - SEDATION [None]
